FAERS Safety Report 19912109 (Version 1)
Quarter: 2021Q4

REPORT INFORMATION
  Report Type: Other
  Country: CN (occurrence: CN)
  Receive Date: 20211004
  Receipt Date: 20211004
  Transmission Date: 20220303
  Serious: Yes (Other)
  Sender: FDA-Public Use
  Company Number: CN-BOEHRINGERINGELHEIM-2021-BI-128688

PATIENT
  Age: 61 Year
  Sex: Male

DRUGS (1)
  1. ALTEPLASE [Suspect]
     Active Substance: ALTEPLASE
     Indication: Ischaemic stroke
     Dosage: DOSE OF 0.9 MG/KG (RESULTING IN A CUMULATIVE DOSE OF 45 MG RT-PA)
     Route: 042

REACTIONS (1)
  - Anterior spinal artery syndrome [Recovering/Resolving]
